FAERS Safety Report 14058091 (Version 1)
Quarter: 2017Q4

REPORT INFORMATION
  Report Type: Spontaneous
  Country: DE (occurrence: DE)
  Receive Date: 20171006
  Receipt Date: 20171006
  Transmission Date: 20180321
  Serious: Yes (Other)
  Sender: FDA-Public Use
  Company Number: PHHY2017DE143999

PATIENT
  Age: 82 Year
  Sex: Female

DRUGS (3)
  1. METFORMIN [Concomitant]
     Active Substance: METFORMIN HYDROCHLORIDE
     Indication: TYPE 2 DIABETES MELLITUS
     Dosage: UNK
     Route: 065
  2. ENALAPRIL [Concomitant]
     Active Substance: ENALAPRIL
     Indication: HYPERTENSION
     Dosage: UNK
     Route: 065
  3. BRINZOLAMIDE/BRIMONIDINE TARTRATE [Suspect]
     Active Substance: BRIMONIDINE TARTRATE\BRINZOLAMIDE
     Indication: NORMAL TENSION GLAUCOMA
     Dosage: UNK (1 % BRINZOLAMIDE AND 0.2 % BRIMONIDINE TARTRATE)
     Route: 047

REACTIONS (2)
  - Eye irritation [Recovered/Resolved]
  - Uveitis [Recovering/Resolving]
